FAERS Safety Report 13017398 (Version 1)
Quarter: 2016Q4

REPORT INFORMATION
  Report Type: Spontaneous
  Country: US (occurrence: US)
  Receive Date: 20161210
  Receipt Date: 20161210
  Transmission Date: 20170207
  Serious: Yes (Disabling)
  Sender: FDA-Public Use
  Company Number: None

PATIENT
  Age: 36 Year
  Sex: Male
  Weight: 86.4 kg

DRUGS (9)
  1. ALPRAZOSIN [Concomitant]
  2. RISPERDAL CONSTA [Suspect]
     Active Substance: RISPERIDONE
     Indication: MENTAL DISORDER
     Dosage: ?          QUANTITY:1 INJECTION(S);OTHER ROUTE:INJECTION IN THE ARM?
     Dates: start: 20161122, end: 20161206
  3. IBUPROPHEN 800 [Concomitant]
  4. BENTROPINE MESYLATE (BENZATROPINE MESILATE) [Concomitant]
     Active Substance: BENZTROPINE
  5. RISPERDONE [Concomitant]
     Active Substance: RISPERIDONE
  6. SUMATRIPTAN. [Concomitant]
     Active Substance: SUMATRIPTAN
  7. BUPROPION. [Concomitant]
     Active Substance: BUPROPION
  8. PRAZOSIN [Concomitant]
     Active Substance: PRAZOSIN
  9. VERAPAMIL [Concomitant]
     Active Substance: VERAPAMIL HYDROCHLORIDE

REACTIONS (3)
  - Swelling face [None]
  - Hypersensitivity [None]
  - Eye swelling [None]

NARRATIVE: CASE EVENT DATE: 20161208
